FAERS Safety Report 6721358-4 (Version None)
Quarter: 2010Q2

REPORT INFORMATION
  Report Type: 
  Country: None (occurrence: None)
  Receive Date: 20100512
  Receipt Date: 20100507
  Transmission Date: 20101027
  Serious: Yes (Other)
  Sender: FDA-Public Use
  Company Number: PHHY2010JP25126

PATIENT
  Age: 33 Year
  Sex: Male

DRUGS (3)
  1. CARBAMAZEPINE [Suspect]
     Indication: STATUS EPILEPTICUS
     Dosage: 400 MG/DAY
  2. ZONISAMIDE [Concomitant]
     Indication: STATUS EPILEPTICUS
     Dosage: 200 MG/ DAY
  3. CLONAZEPAM [Concomitant]
     Indication: STATUS EPILEPTICUS
     Dosage: 3 MG/ DAY

REACTIONS (7)
  - C-REACTIVE PROTEIN INCREASED [None]
  - HYPOGAMMAGLOBULINAEMIA [None]
  - INTERSTITIAL LUNG DISEASE [None]
  - LYMPHOCYTE COUNT DECREASED [None]
  - LYMPHOCYTE STIMULATION TEST POSITIVE [None]
  - PYREXIA [None]
  - RASH [None]
